FAERS Safety Report 9447730 (Version 1)
Quarter: 2013Q3

REPORT INFORMATION
  Report Type: Spontaneous
  Country: CA (occurrence: CA)
  Receive Date: 20130808
  Receipt Date: 20130808
  Transmission Date: 20140515
  Serious: Yes (Hospitalization)
  Sender: FDA-Public Use
  Company Number: CA-ELI_LILLY_AND_COMPANY-CA201307010549

PATIENT
  Sex: Female

DRUGS (6)
  1. ZYPREXA [Suspect]
     Dosage: 5 MG, EACH EVENING
  2. HYDROMORPHONE [Concomitant]
     Dosage: 6 MG, BID
  3. PERCOCET                           /00446701/ [Concomitant]
     Indication: BREAKTHROUGH PAIN
     Dosage: 2 DF, EVERY 4 HRS
  4. VENTOLIN                           /00139501/ [Concomitant]
     Dosage: UNK, PRN
     Route: 055
  5. VITAMIN D NOS [Concomitant]
     Dosage: 1000 U, QD
  6. NICOTINE [Concomitant]
     Dosage: UNK, UNKNOWN
     Route: 062

REACTIONS (6)
  - Ligament sprain [Recovered/Resolved]
  - Multiple sclerosis [Not Recovered/Not Resolved]
  - Mobility decreased [Recovering/Resolving]
  - Bladder catheterisation [Recovered/Resolved]
  - Pain [Recovering/Resolving]
  - Weight increased [Not Recovered/Not Resolved]
